FAERS Safety Report 13561337 (Version 1)
Quarter: 2017Q2

REPORT INFORMATION
  Report Type: Spontaneous
  Country: DE (occurrence: DE)
  Receive Date: 20170518
  Receipt Date: 20170518
  Transmission Date: 20170830
  Serious: Yes (Hospitalization)
  Sender: FDA-Public Use
  Company Number: DE-JNJFOC-20170507582

PATIENT
  Age: 50 Year
  Sex: Male

DRUGS (16)
  1. HALDOL [Suspect]
     Active Substance: HALOPERIDOL
     Indication: ANXIETY
     Route: 030
  2. HALDOL [Suspect]
     Active Substance: HALOPERIDOL
     Indication: ANXIETY
     Route: 030
  3. CLOZAPIN [Interacting]
     Active Substance: CLOZAPINE
     Indication: ANXIETY
     Route: 048
     Dates: start: 20160616, end: 20160726
  4. CLOZAPIN [Interacting]
     Active Substance: CLOZAPINE
     Indication: ANXIETY
     Route: 048
     Dates: start: 20160727, end: 20160831
  5. CLOZAPIN [Interacting]
     Active Substance: CLOZAPINE
     Indication: ANXIETY
     Route: 048
     Dates: start: 20160901, end: 20160906
  6. LYRICA [Concomitant]
     Active Substance: PREGABALIN
     Route: 048
     Dates: start: 20160624, end: 20160625
  7. ASPIRIN. [Concomitant]
     Active Substance: ASPIRIN
     Dosage: ONGOING SINCE LONG PERIOD OF TIME.
     Route: 048
  8. HALDOL [Suspect]
     Active Substance: HALOPERIDOL
     Indication: ANXIETY
     Route: 048
     Dates: start: 20160615, end: 20160707
  9. CIATYL-Z ACUPHASE [Interacting]
     Active Substance: ZUCLOPENTHIXOL ACETATE
     Indication: ANXIETY
     Route: 030
     Dates: start: 20160630
  10. LYRICA [Concomitant]
     Active Substance: PREGABALIN
     Route: 048
     Dates: start: 20160623
  11. GASTROZEPIN [Concomitant]
     Active Substance: PIRENZEPINE HYDROCHLORIDE
     Route: 048
     Dates: start: 20100101
  12. AKINETON [Interacting]
     Active Substance: BIPERIDEN HYDROCHLORIDE
     Indication: ANXIETY
     Route: 065
     Dates: start: 20160430, end: 20160705
  13. CIATYL-Z ACUPHASE [Interacting]
     Active Substance: ZUCLOPENTHIXOL ACETATE
     Indication: ANXIETY
     Route: 030
     Dates: start: 20160624, end: 201606
  14. LYRICA [Concomitant]
     Active Substance: PREGABALIN
     Route: 048
     Dates: start: 20160626, end: 20160628
  15. HALDOL [Suspect]
     Active Substance: HALOPERIDOL
     Indication: ANXIETY
     Route: 030
  16. LYRICA [Concomitant]
     Active Substance: PREGABALIN
     Route: 048
     Dates: start: 20160629, end: 20160704

REACTIONS (8)
  - Seizure [Recovered/Resolved]
  - Pleurothotonus [Unknown]
  - Off label use [Unknown]
  - Drug interaction [Unknown]
  - Fall [Unknown]
  - Blood creatine phosphokinase increased [Unknown]
  - Drug ineffective for unapproved indication [Unknown]
  - Gait disturbance [Unknown]

NARRATIVE: CASE EVENT DATE: 20160702
